FAERS Safety Report 14249679 (Version 1)
Quarter: 2017Q4

REPORT INFORMATION
  Report Type: Spontaneous
  Country: US (occurrence: US)
  Receive Date: 20171204
  Receipt Date: 20171204
  Transmission Date: 20180321
  Serious: Yes (Disabling)
  Sender: FDA-Public Use
  Company Number: None

PATIENT
  Age: 66 Year
  Sex: Female
  Weight: 54.9 kg

DRUGS (18)
  1. KLONOPIN [Concomitant]
     Active Substance: CLONAZEPAM
  2. ALTERIL [Concomitant]
  3. PROBIOTICS [Concomitant]
     Active Substance: PROBIOTICS NOS
  4. VITAMIN E [Concomitant]
     Active Substance: .ALPHA.-TOCOPHEROL
  5. VITAMIN D [Concomitant]
     Active Substance: CHOLECALCIFEROL
  6. ZINC. [Concomitant]
     Active Substance: ZINC
  7. COQ10 [Concomitant]
     Active Substance: UBIDECARENONE
  8. DIGESTIVE ENZIMES [Concomitant]
  9. BEEF COLLEGEN [Concomitant]
  10. VITAMIN C [Concomitant]
     Active Substance: ASCORBIC ACID
  11. PURE BAKING SODA [Concomitant]
     Active Substance: SODIUM BICARBONATE
  12. AVELOX [Suspect]
     Active Substance: MOXIFLOXACIN HYDROCHLORIDE
     Indication: RESPIRATORY TRACT INFECTION
     Route: 048
     Dates: start: 20011101, end: 20011108
  13. BIN HAN GINSENG [Concomitant]
  14. STRESS TABS [Concomitant]
  15. TRAMADOL. [Concomitant]
     Active Substance: TRAMADOL
  16. MULTIPLE VITAMIN [Concomitant]
     Active Substance: VITAMINS
  17. MAGNESIUM [Concomitant]
     Active Substance: MAGNESIUM
  18. ALKA-SELTZER GOLD [Concomitant]
     Active Substance: ANHYDROUS CITRIC ACID\POTASSIUM BICARBONATE\SODIUM BICARBONATE

REACTIONS (2)
  - Neuropathy peripheral [None]
  - Impaired work ability [None]

NARRATIVE: CASE EVENT DATE: 20011101
